FAERS Safety Report 5259876-0 (Version None)
Quarter: 2007Q1

REPORT INFORMATION
  Report Type: 
  Country: None (occurrence: None)
  Receive Date: 20070306
  Receipt Date: 20070220
  Transmission Date: 20070707
  Serious: Yes (Death)
  Sender: FDA-Public Use
  Company Number: 2007P1000112

PATIENT
  Age: 44 Year
  Sex: Male

DRUGS (3)
  1. BUSULFAN  (BUSULFAN ) [Suspect]
     Indication: STEM CELL TRANSPLANT
     Dosage: 5 ML; IV
     Route: 042
     Dates: start: 20061212, end: 20061212
  2. PHENYTOIN [Concomitant]
  3. CYCLOPHOSPHAMIDE [Concomitant]

REACTIONS (4)
  - DRUG TOXICITY [None]
  - GRAFT VERSUS HOST DISEASE [None]
  - SEPTIC SHOCK [None]
  - STEM CELL TRANSPLANT [None]
